FAERS Safety Report 23558968 (Version 1)
Quarter: 2024Q1

REPORT INFORMATION
  Report Type: Spontaneous
  Country: US (occurrence: None)
  Receive Date: 20240223
  Receipt Date: 20240223
  Transmission Date: 20240410
  Serious: Yes (Hospitalization)
  Sender: FDA-Public Use
  Company Number: None

PATIENT
  Age: 62 Year
  Sex: Female
  Weight: 61.2 kg

DRUGS (3)
  1. CARBOPLATIN [Suspect]
     Active Substance: CARBOPLATIN
     Dates: end: 20240215
  2. PEMBROLIZUMAB [Suspect]
     Active Substance: PEMBROLIZUMAB
     Dates: end: 20240125
  3. ALIMTA [Suspect]
     Active Substance: PEMETREXED DISODIUM
     Dates: end: 20240215

REACTIONS (10)
  - Pulmonary embolism [None]
  - Asthenia [None]
  - Somnolence [None]
  - Headache [None]
  - Abdominal pain [None]
  - Anaemia [None]
  - Constipation [None]
  - Gastrointestinal pain [None]
  - Acute kidney injury [None]
  - Sepsis [None]

NARRATIVE: CASE EVENT DATE: 20240220
